FAERS Safety Report 10037390 (Version 2)
Quarter: 2014Q1

REPORT INFORMATION
  Report Type: Spontaneous
  Country: PL (occurrence: PL)
  Receive Date: 20140326
  Receipt Date: 20140326
  Transmission Date: 20141002
  Serious: Yes (Hospitalization, Other)
  Sender: FDA-Public Use
  Company Number: PL-ACCORD-022078

PATIENT
  Age: 27 Year
  Sex: Female

DRUGS (10)
  1. BETAMETHASONE [Concomitant]
     Indication: PRODUCT USED FOR UNKNOWN INDICATION
  2. ENOXAPARIN [Suspect]
     Indication: PRODUCT USED FOR UNKNOWN INDICATION
  3. METHYLDOPA [Suspect]
     Indication: HYPERTENSION
     Dosage: INITIALLY, THE PATIENT HAD TAKEN 0.5 G OF MEHYLDOPA.
  4. PHOSPHOLIPIDS [Suspect]
     Indication: PRODUCT USED FOR UNKNOWN INDICATION
  5. METOPROLOL [Suspect]
     Indication: HYPERTENSION
  6. LEVOTHYROXINE [Suspect]
     Indication: PRODUCT USED FOR UNKNOWN INDICATION
     Dosage: THE PATIENT HAD HAVE 50/75 PG OF DRUG.
  7. PREDNISONE [Suspect]
     Indication: PRODUCT USED FOR UNKNOWN INDICATION
  8. ORNITHINE [Suspect]
     Indication: PRODUCT USED FOR UNKNOWN INDICATION
  9. ACETYLSALICYLIC ACID [Suspect]
     Indication: PRODUCT USED FOR UNKNOWN INDICATION
  10. URSODEOXYCHOLATE SODIUM [Suspect]
     Indication: PRODUCT USED FOR UNKNOWN INDICATION

REACTIONS (3)
  - C-reactive protein increased [Unknown]
  - Exposure during pregnancy [Unknown]
  - Hepatic enzyme increased [Unknown]
